FAERS Safety Report 5604651-8 (Version None)
Quarter: 2008Q1

REPORT INFORMATION
  Report Type: 
  Country: None (occurrence: None)
  Receive Date: 20080128
  Receipt Date: 20080117
  Transmission Date: 20080703
  Serious: Yes (Hospitalization)
  Sender: FDA-Public Use
  Company Number: FR-MERCK-0801FRA00062

PATIENT
  Age: 23 Year
  Sex: Female

DRUGS (5)
  1. CANCIDAS [Suspect]
     Indication: PROPHYLAXIS
     Route: 042
     Dates: start: 20040201
  2. VORICONAZOLE [Suspect]
     Indication: PROPHYLAXIS
     Route: 048
     Dates: start: 20040201, end: 20070801
  3. VORICONAZOLE [Suspect]
     Route: 048
     Dates: start: 20071001
  4. CEFTRIAXONE SODIUM [Suspect]
     Indication: LUNG INFECTION
     Route: 065
     Dates: start: 20070407, end: 20070501
  5. SULFAMETHOXAZOLE AND TRIMETHOPRIM [Concomitant]
     Route: 065

REACTIONS (3)
  - BRONCHITIS [None]
  - CHOLELITHIASIS [None]
  - HAEMOPTYSIS [None]
